FAERS Safety Report 22227079 (Version 1)
Quarter: 2023Q2

REPORT INFORMATION
  Report Type: Report from Study
  Country: US (occurrence: US)
  Receive Date: 20230419
  Receipt Date: 20230419
  Transmission Date: 20230721
  Serious: Yes (Other)
  Sender: FDA-Public Use
  Company Number: US-002147023-NVSC2023US088812

PATIENT
  Sex: Male

DRUGS (1)
  1. PLUVICTO [Suspect]
     Active Substance: LUTETIUM LU-177 VIPIVOTIDE TETRAXETAN
     Indication: Prostate cancer
     Dosage: UNK, OTHER (RECEIVED 5 TREATMENTS)
     Route: 065
     Dates: start: 202207, end: 202301

REACTIONS (4)
  - Prostatic specific antigen increased [Unknown]
  - Drug ineffective [Unknown]
  - Fatigue [Unknown]
  - Ageusia [Unknown]

NARRATIVE: CASE EVENT DATE: 20220101
